FAERS Safety Report 24042930 (Version 10)
Quarter: 2025Q2

REPORT INFORMATION
  Report Type: Report from Study
  Country: FR (occurrence: FR)
  Receive Date: 20240702
  Receipt Date: 20250417
  Transmission Date: 20250717
  Serious: Yes (Life-Threatening, Hospitalization, Other)
  Sender: NOVARTIS
  Company Number: FR-002147023-NVSC2024FR136445

PATIENT
  Sex: Female
  Weight: 72 kg

DRUGS (20)
  1. KISQALI [Suspect]
     Active Substance: RIBOCICLIB SUCCINATE
     Indication: Hormone receptor positive HER2 negative breast cancer
     Dosage: 600 MG, QD
     Route: 048
     Dates: start: 20240531, end: 20240613
  2. KISQALI [Suspect]
     Active Substance: RIBOCICLIB SUCCINATE
     Dosage: 400 MG, QD
     Route: 048
     Dates: start: 20240719, end: 20240808
  3. KISQALI [Suspect]
     Active Substance: RIBOCICLIB SUCCINATE
     Dosage: 400 MG, QD
     Route: 048
     Dates: start: 20241011
  4. LETROZOLE [Suspect]
     Active Substance: LETROZOLE
     Indication: Breast cancer
     Dosage: 1 DOSAGE FORM, QD (2.5 MG/J)
     Route: 048
     Dates: start: 20240531
  5. TAXOL [Concomitant]
     Active Substance: PACLITAXEL
     Indication: Product used for unknown indication
     Route: 065
  6. DEXTROSE MONOHYDRATE\POTASSIUM CHLORIDE\SODIUM CHLORIDE [Concomitant]
     Active Substance: DEXTROSE MONOHYDRATE\POTASSIUM CHLORIDE\SODIUM CHLORIDE
     Indication: Dehydration
     Dosage: UNK, Q24H (1000 CC)
     Route: 042
  7. KARDEGIC [Concomitant]
     Active Substance: ASPIRIN DL-LYSINE
     Indication: Anticoagulant therapy
     Dosage: 75 MG, QD
     Route: 048
  8. LANSOPRAZOLE [Concomitant]
     Active Substance: LANSOPRAZOLE
     Indication: Gastrointestinal disorder
     Dosage: 15 MG, QD
     Route: 048
  9. BISOPROLOL [Concomitant]
     Active Substance: BISOPROLOL
     Indication: Cardiac failure
     Dosage: 5 MG, QD
     Route: 048
  10. BISOPROLOL [Concomitant]
     Active Substance: BISOPROLOL
     Indication: Blood pressure increased
     Dosage: 10 MG, QD (MORNING)
     Route: 065
  11. BISOPROLOL [Concomitant]
     Active Substance: BISOPROLOL
     Route: 048
  12. OXAZEPAM [Concomitant]
     Active Substance: OXAZEPAM
     Indication: Anxiety
     Dosage: 5 MG, BID
     Route: 048
  13. Transipeg [Concomitant]
     Indication: Laxative supportive care
     Route: 048
  14. Calcidose [Concomitant]
     Indication: Blood calcium decreased
     Route: 048
  15. LOVENOX [Concomitant]
     Active Substance: ENOXAPARIN SODIUM
     Indication: Thrombosis
     Dosage: 0.4 ML, QD
     Route: 058
  16. RAMIPRIL [Concomitant]
     Active Substance: RAMIPRIL
     Indication: Blood pressure increased
     Dosage: 10 MG, QD (5 MG / 2 TABS / MORNING)
     Route: 048
     Dates: start: 20240616, end: 20240628
  17. RAMIPRIL [Concomitant]
     Active Substance: RAMIPRIL
     Indication: Cardiac failure
  18. FOLIC ACID [Concomitant]
     Active Substance: FOLIC ACID
     Indication: Red blood cell count decreased
     Dosage: 5 MG, QD
     Route: 048
     Dates: start: 20240616, end: 20240628
  19. FUNGIZONE [Concomitant]
     Active Substance: AMPHOTERICIN B
     Indication: Antifungal treatment
     Route: 048
     Dates: start: 20240616, end: 20240628
  20. AMLODIPINE [Concomitant]
     Active Substance: AMLODIPINE BESYLATE
     Indication: Hypertension
     Route: 048

REACTIONS (10)
  - Sepsis [Recovered/Resolved]
  - Lymphopenia [Recovered/Resolved]
  - Staphylococcal bacteraemia [Recovered/Resolved]
  - Neutropenia [Recovered/Resolved]
  - Respiratory distress [Unknown]
  - Malnutrition [Unknown]
  - Decreased appetite [Unknown]
  - Blood creatinine decreased [Unknown]
  - Pain [Unknown]
  - Lymphopenia [Recovering/Resolving]

NARRATIVE: CASE EVENT DATE: 20240612
